FAERS Safety Report 9842336 (Version 4)
Quarter: 2014Q2

REPORT INFORMATION
  Report Type: Spontaneous
  Country: US (occurrence: US)
  Receive Date: 20140124
  Receipt Date: 20140603
  Transmission Date: 20141212
  Serious: Yes (Other)
  Sender: FDA-Public Use
  Company Number: US-PFIZER INC-2014020680

PATIENT
  Age: 63 Year
  Sex: Female
  Weight: 122.5 kg

DRUGS (7)
  1. LYRICA [Suspect]
     Indication: FIBROMYALGIA
     Dosage: 150 MG, 4X/DAY (EVERY 6 HOURS)
     Route: 048
  2. LYRICA [Suspect]
     Dosage: 150 MG, 4X/DAY
     Route: 048
     Dates: start: 2014, end: 201402
  3. PRENATAL VITAMINS [Concomitant]
     Dosage: UNK
  4. CALCIUM + VIT D [Concomitant]
     Dosage: 2 DF (2 CAPSULES, 1 CAPSULE OF 50000 IU), 3X/DAY
  5. MAGNESIUM/ZINC [Concomitant]
     Dosage: 6 DF, DAILY
  6. PERCOCET [Concomitant]
     Dosage: UNK
  7. SKELAXIN [Concomitant]
     Dosage: 400 MG, 3X/DAY (EVERY 8 HOURS)

REACTIONS (7)
  - Lung disorder [Unknown]
  - Cardiac disorder [Unknown]
  - Renal disorder [Unknown]
  - Gait disturbance [Unknown]
  - Drug withdrawal syndrome [Unknown]
  - Nervousness [Unknown]
  - Feeling abnormal [Unknown]
